FAERS Safety Report 19901919 (Version 1)
Quarter: 2021Q3

REPORT INFORMATION
  Report Type: Spontaneous
  Country: US (occurrence: US)
  Receive Date: 20210929
  Receipt Date: 20210929
  Transmission Date: 20211014
  Serious: Yes (Hospitalization)
  Sender: FDA-Public Use
  Company Number: US-JNJFOC-20210939002

PATIENT
  Sex: Female

DRUGS (1)
  1. STELARA [Suspect]
     Active Substance: USTEKINUMAB
     Indication: PRODUCT USED FOR UNKNOWN INDICATION
     Route: 042
     Dates: start: 20210831

REACTIONS (6)
  - Abdominal pain upper [Unknown]
  - Hypotension [Unknown]
  - Chills [Unknown]
  - Vomiting [Unknown]
  - Hepatic enzyme increased [Unknown]
  - Nausea [Unknown]
